FAERS Safety Report 5299402-3 (Version None)
Quarter: 2007Q2

REPORT INFORMATION
  Report Type: 
  Country: None (occurrence: None)
  Receive Date: 20070411
  Receipt Date: 20070411
  Transmission Date: 20071010
  Serious: Yes (Other)
  Sender: FDA-Public Use
  Company Number: None

PATIENT
  Age: 80 Year
  Sex: Female
  Weight: 71.6683 kg

DRUGS (2)
  1. BONIVA [Suspect]
     Indication: OSTEOPOROSIS
     Dosage: 1 INJECTION EVERY 3 MO IV
     Route: 042
     Dates: start: 20061016, end: 20070115
  2. VITAMIN D [Suspect]
     Indication: VITAMIN D DECREASED
     Dosage: 1 PILL ONCE PER WEEK ORALLY
     Route: 048
     Dates: start: 20060906, end: 20070323

REACTIONS (9)
  - ASTHENIA [None]
  - BREAST PAIN [None]
  - CHILLS [None]
  - DECREASED APPETITE [None]
  - MUSCULOSKELETAL CHEST PAIN [None]
  - MUSCULOSKELETAL PAIN [None]
  - NECK PAIN [None]
  - PAIN IN EXTREMITY [None]
  - VERTIGO [None]
